FAERS Safety Report 5300714-5 (Version None)
Quarter: 2007Q2

REPORT INFORMATION
  Report Type: 
  Country: None (occurrence: None)
  Receive Date: 20070418
  Receipt Date: 20070319
  Transmission Date: 20071010
  Serious: No
  Sender: FDA-Public Use
  Company Number: US-BRISTOL-MYERS SQUIBB COMPANY-13719182

PATIENT

DRUGS (1)
  1. THALLOUS CHLORIDE TL 201 [Suspect]

REACTIONS (1)
  - RASH [None]
